FAERS Safety Report 25981778 (Version 1)
Quarter: 2025Q4

REPORT INFORMATION
  Report Type: Spontaneous
  Country: US (occurrence: US)
  Receive Date: 20251031
  Receipt Date: 20251031
  Transmission Date: 20260118
  Serious: No
  Sender: ROCHE
  Company Number: US-ROCHE-10000422771

PATIENT
  Sex: Female

DRUGS (2)
  1. XOLAIR PFS [Suspect]
     Active Substance: OMALIZUMAB
     Indication: Idiopathic urticaria
     Dosage: STRENGTH: 150 MG/ML
     Route: 058
     Dates: start: 202501
  2. XOLAIR PFS [Suspect]
     Active Substance: OMALIZUMAB

REACTIONS (4)
  - Urticaria [Unknown]
  - Lip swelling [Unknown]
  - Vomiting [Unknown]
  - Off label use [Unknown]
